FAERS Safety Report 16870337 (Version 5)
Quarter: 2019Q4

REPORT INFORMATION
  Report Type: Spontaneous
  Country: JP (occurrence: JP)
  Receive Date: 20190930
  Receipt Date: 20191227
  Transmission Date: 20200122
  Serious: Yes (Life-Threatening, Hospitalization, Other)
  Sender: FDA-Public Use
  Company Number: JP-GILEAD-2019-0430489

PATIENT
  Age: 44 Year
  Sex: Male
  Weight: 99.3 kg

DRUGS (9)
  1. EPCLUSA [Suspect]
     Active Substance: SOFOSBUVIR\VELPATASVIR
     Indication: CHRONIC HEPATITIS C
     Dosage: 1 DOSAGE FORM, QD
     Route: 048
     Dates: start: 20190919
  2. PORTOLAC [Concomitant]
     Active Substance: LACTITOL
     Indication: HEPATIC ENCEPHALOPATHY
     Dosage: 6 DOSAGE FORM
     Route: 048
     Dates: start: 20190710
  3. LEVOCARNITINE. [Concomitant]
     Active Substance: LEVOCARNITINE
     Indication: HEPATIC ENCEPHALOPATHY
     Dosage: 1500 MG
     Route: 048
     Dates: start: 20190710
  4. URSO [Concomitant]
     Active Substance: URSODIOL
     Indication: CHRONIC HEPATITIS
     Dosage: 600 MG
     Route: 048
     Dates: start: 20190710
  5. FUROSEMIDE. [Concomitant]
     Active Substance: FUROSEMIDE
     Indication: ASCITES
     Dosage: 20 MG
     Route: 048
     Dates: start: 20190710
  6. RIFXIMA [Concomitant]
     Active Substance: RIFAXIMIN
     Indication: HEPATIC ENCEPHALOPATHY
     Dosage: 1200 MG
     Route: 048
     Dates: start: 20190710
  7. EPCLUSA [Suspect]
     Active Substance: SOFOSBUVIR\VELPATASVIR
     Indication: HEPATIC CIRRHOSIS
  8. AMINOVACT [Concomitant]
     Active Substance: ISOLEUCINE\LEUCINE\VALINE
     Indication: HEPATIC ENCEPHALOPATHY
     Dosage: 3 DOSAGE FORM
     Route: 048
     Dates: start: 20190710
  9. SPIRONOLACTONE. [Concomitant]
     Active Substance: SPIRONOLACTONE
     Indication: ASCITES
     Dosage: 25 MG
     Route: 048
     Dates: start: 20190710

REACTIONS (2)
  - Hepatic encephalopathy [Recovering/Resolving]
  - Hyperammonaemia [Recovering/Resolving]

NARRATIVE: CASE EVENT DATE: 20190925
